FAERS Safety Report 13252223 (Version 1)
Quarter: 2017Q1

REPORT INFORMATION
  Report Type: Report from Study
  Country: US (occurrence: US)
  Receive Date: 20170220
  Receipt Date: 20170220
  Transmission Date: 20170428
  Serious: Yes (Other)
  Sender: FDA-Public Use
  Company Number: US-UCBSA-2017006631

PATIENT

DRUGS (5)
  1. LACOSAMIDE. [Suspect]
     Active Substance: LACOSAMIDE
     Dosage: 600 MG DAILY
  2. LACOSAMIDE. [Suspect]
     Active Substance: LACOSAMIDE
     Dosage: 300 MG (100 MG IM AM AND 200 MG AT NIGHT), 2X/DAY (BID)
  3. LACOSAMIDE. [Suspect]
     Active Substance: LACOSAMIDE
     Indication: PRODUCT USED FOR UNKNOWN INDICATION
     Dosage: 200 MG
     Dates: start: 2016
  4. LACOSAMIDE. [Suspect]
     Active Substance: LACOSAMIDE
     Dosage: DOSE INCREASE (EVENTUAL)
  5. LACOSAMIDE. [Suspect]
     Active Substance: LACOSAMIDE
     Dosage: 500 MG

REACTIONS (11)
  - Suicidal ideation [Unknown]
  - Diplopia [Recovering/Resolving]
  - Amnesia [Unknown]
  - Hypersomnia [Unknown]
  - Depression [Unknown]
  - Generalised tonic-clonic seizure [Unknown]
  - Gait disturbance [Recovering/Resolving]
  - Thinking abnormal [Unknown]
  - Intentional overdose [Unknown]
  - Hypoaesthesia [Unknown]
  - Feeling abnormal [Unknown]
